FAERS Safety Report 10695683 (Version 1)
Quarter: 2015Q1

REPORT INFORMATION
  Report Type: Spontaneous
  Country: US (occurrence: None)
  Receive Date: 20150106
  Receipt Date: 20150106
  Transmission Date: 20150721
  Serious: Yes (Other)
  Sender: FDA-Public Use
  Company Number: None

PATIENT
  Age: 50 Year
  Sex: Female
  Weight: 83.92 kg

DRUGS (2)
  1. ESCITALOPRAM 20 MG [Suspect]
     Active Substance: ESCITALOPRAM OXALATE
     Indication: DEPRESSION
     Dosage: TAKEN BY MOUTH
     Route: 048
  2. ESCITALOPRAM 20 MG [Suspect]
     Active Substance: ESCITALOPRAM OXALATE
     Indication: ANXIETY
     Dosage: TAKEN BY MOUTH
     Route: 048

REACTIONS (6)
  - Drug ineffective [None]
  - Activities of daily living impaired [None]
  - Product substitution issue [None]
  - Weight increased [None]
  - Suicidal ideation [None]
  - Anxiety [None]
